FAERS Safety Report 5554984-9 (Version None)
Quarter: 2007Q4

REPORT INFORMATION
  Report Type: 
  Country: None (occurrence: None)
  Receive Date: 20071213
  Receipt Date: 20071205
  Transmission Date: 20080405
  Serious: Yes (Other)
  Sender: FDA-Public Use
  Company Number: BR-ASTRAZENECA-2007UW27813

PATIENT
  Age: 64 Year
  Sex: Male
  Weight: 80 kg

DRUGS (4)
  1. CRESTOR [Suspect]
     Indication: HYPERCHOLESTEROLAEMIA
     Route: 048
     Dates: start: 20061201
  2. ATACAND HCT [Suspect]
     Indication: HYPERTENSION
     Dosage: 8 + 12.5 MG
     Route: 048
     Dates: start: 20070901, end: 20071202
  3. CAPTOPRIL [Concomitant]
     Indication: HYPERTENSION
     Dates: end: 20070901
  4. EZETROL [Concomitant]
     Indication: HYPERTRIGLYCERIDAEMIA
     Route: 048
     Dates: start: 20051201

REACTIONS (2)
  - HYPOTENSION [None]
  - RENAL ARTERY STENOSIS [None]
